FAERS Safety Report 9057436 (Version 1)
Quarter: 2013Q1

REPORT INFORMATION
  Report Type: Report from Study
  Country: US (occurrence: US)
  Receive Date: 20130204
  Receipt Date: 20130204
  Transmission Date: 20140127
  Serious: Yes (Hospitalization)
  Sender: FDA-Public Use
  Company Number: US-ABBOTT-13P-163-1043139-00

PATIENT
  Age: 47 None
  Sex: Male
  Weight: 90.8 kg

DRUGS (7)
  1. HUMIRA [Suspect]
     Indication: PSORIATIC ARTHROPATHY
  2. REMICADE [Suspect]
     Indication: PSORIATIC ARTHROPATHY
     Dosage: LYOPHILIZED POWDER
     Route: 042
     Dates: start: 2008, end: 20110623
  3. REMICADE [Suspect]
     Dosage: LYOPHILIZED POWDER
     Route: 042
     Dates: start: 20110623, end: 201205
  4. ENBREL [Suspect]
     Indication: PSORIATIC ARTHROPATHY
  5. PREDNISONE [Concomitant]
     Indication: PRODUCT USED FOR UNKNOWN INDICATION
  6. PREDNISONE [Concomitant]
     Dates: start: 201104
  7. METHOTREXATE [Concomitant]
     Indication: PRODUCT USED FOR UNKNOWN INDICATION
     Dates: start: 1986

REACTIONS (18)
  - Hepatic cirrhosis [Not Recovered/Not Resolved]
  - Monocyte count increased [Unknown]
  - Lupus-like syndrome [Unknown]
  - Anaemia [Unknown]
  - Loss of consciousness [Unknown]
  - Laboratory test abnormal [Unknown]
  - Glycosylated haemoglobin increased [Not Recovered/Not Resolved]
  - Tachycardia [Recovered/Resolved]
  - Dyspnoea [Recovered/Resolved]
  - Infusion related reaction [Recovered/Resolved]
  - Platelet disorder [Not Recovered/Not Resolved]
  - Dermatomyositis [Recovered/Resolved]
  - Muscle enzyme increased [Recovered/Resolved]
  - Arthralgia [Recovered/Resolved]
  - Fatigue [Recovered/Resolved]
  - White blood cell count abnormal [Not Recovered/Not Resolved]
  - Drug hypersensitivity [Recovered/Resolved]
  - Drug ineffective [Unknown]
